FAERS Safety Report 9437739 (Version 1)
Quarter: 2013Q3

REPORT INFORMATION
  Report Type: Spontaneous
  Country: PL (occurrence: None)
  Receive Date: 20130731
  Receipt Date: 20130731
  Transmission Date: 20140515
  Serious: Yes (Other)
  Sender: FDA-Public Use
  Company Number: 2013AP007004

PATIENT
  Age: 47 Year
  Sex: Female

DRUGS (8)
  1. MYCOPHENOLATE MOFETIL (MYCOPHENOLATE MOFETIL) [Suspect]
     Indication: LUPUS NEPHRITIS
  2. CICLOSPORIN (CICLOSPORIN) [Concomitant]
  3. GLUCOCORTICOIDS (GLUCOCORTICOIDS) [Concomitant]
  4. PREDNISONE (PREDNISONE) [Concomitant]
  5. CHLOROQUINE (CHLOROQUINE) [Concomitant]
  6. HYDROXYCHLOROQUINE (HYDROXYCHLOROQUINE) [Concomitant]
  7. ENOXAPARIN SODIUM (ENOXAPARIN SODIUM) [Concomitant]
  8. WARFARIN (WARFARIN) [Concomitant]

REACTIONS (2)
  - Herpes zoster [None]
  - Urosepsis [None]
